FAERS Safety Report 7578107-X (Version None)
Quarter: 2011Q2

REPORT INFORMATION
  Report Type: 
  Country: None (occurrence: None)
  Receive Date: 20110628
  Receipt Date: 20110623
  Transmission Date: 20111010
  Serious: Yes (Life-Threatening, Hospitalization)
  Sender: FDA-Public Use
  Company Number: US-ASTRAZENECA-2011SE37011

PATIENT
  Age: 30 Year
  Sex: Male

DRUGS (10)
  1. SEROQUEL XR [Suspect]
     Indication: SLEEP DISORDER
     Route: 048
     Dates: start: 20090701, end: 20110501
  2. SEROQUEL XR [Suspect]
     Route: 048
  3. SEROQUEL XR [Suspect]
     Indication: AFFECTIVE DISORDER
     Route: 048
     Dates: start: 20090701, end: 20110501
  4. CELEXA [Concomitant]
  5. SEROQUEL XR [Suspect]
     Route: 048
  6. SEROQUEL XR [Suspect]
     Route: 048
  7. SEROQUEL XR [Suspect]
     Indication: BIPOLAR DISORDER
     Route: 048
     Dates: start: 20090701, end: 20110501
  8. SEROQUEL XR [Suspect]
     Route: 048
  9. SEROQUEL XR [Suspect]
     Indication: HEAD INJURY
     Route: 048
     Dates: start: 20090701, end: 20110501
  10. CITALOPRAM HYDROBROMIDE [Concomitant]

REACTIONS (32)
  - PELVIC FRACTURE [None]
  - FRUSTRATION [None]
  - FURUNCLE [None]
  - SUBDURAL HAEMATOMA [None]
  - HAEMATOMA EVACUATION [None]
  - TENSION [None]
  - CARBUNCLE [None]
  - HYPOTHYROIDISM [None]
  - SLOW RESPONSE TO STIMULI [None]
  - OFF LABEL USE [None]
  - DECUBITUS ULCER [None]
  - BRAIN INJURY [None]
  - HAEMORRHAGE INTRACRANIAL [None]
  - FIBULA FRACTURE [None]
  - AGITATION [None]
  - LOSS OF CONSCIOUSNESS [None]
  - POOR QUALITY SLEEP [None]
  - SPINAL FRACTURE [None]
  - CHEST TUBE INSERTION [None]
  - INSOMNIA [None]
  - DEPRESSION [None]
  - ROAD TRAFFIC ACCIDENT [None]
  - CONTUSION [None]
  - TRAUMATIC LUNG INJURY [None]
  - DRUG DOSE OMISSION [None]
  - COMA [None]
  - CRANIOTOMY [None]
  - STAPHYLOCOCCAL INFECTION [None]
  - SKIN ULCER [None]
  - JUDGEMENT IMPAIRED [None]
  - IMPAIRED REASONING [None]
  - HYPERTENSION [None]
